FAERS Safety Report 19358833 (Version 1)
Quarter: 2021Q2

REPORT INFORMATION
  Report Type: Spontaneous
  Country: FR (occurrence: FR)
  Receive Date: 20210602
  Receipt Date: 20210602
  Transmission Date: 20210717
  Serious: Yes (Death, Life-Threatening)
  Sender: FDA-Public Use
  Company Number: FR-FRESENIUS KABI-FK202105558

PATIENT
  Age: 56 Year
  Sex: Male

DRUGS (8)
  1. CEFOTAXIME [Concomitant]
     Active Substance: CEFOTAXIME SODIUM
     Indication: COVID-19
     Route: 065
  2. AMOXICILLIN. [Concomitant]
     Active Substance: AMOXICILLIN
     Indication: PNEUMONIA BACTERIAL
     Route: 065
  3. PRISTINAMYCIN [Concomitant]
     Active Substance: PRISTINAMYCIN
     Indication: PNEUMONIA BACTERIAL
     Route: 065
  4. DEXAMETHASONE INJECTION (MANUFACTURER UNKNOWN) [Suspect]
     Active Substance: DEXAMETHASONE
     Indication: COVID-19
     Route: 065
  5. FLUTICASONE PROPIONATE/SALMETEROL XINAFOATE [Suspect]
     Active Substance: FLUTICASONE PROPIONATE\SALMETEROL XINAFOATE
     Indication: CHRONIC OBSTRUCTIVE PULMONARY DISEASE
     Route: 065
  6. ECULIZUMAB [Suspect]
     Active Substance: ECULIZUMAB
     Indication: COVID-19
     Route: 065
  7. SPIRAMYCIN [Concomitant]
     Active Substance: SPIRAMYCIN
     Indication: COVID-19
     Route: 065
  8. PIPERACILLIN SODIUM/TAZOBACTAM SODIUM [Concomitant]
     Active Substance: PIPERACILLIN SODIUM\TAZOBACTAM SODIUM
     Indication: COVID-19
     Route: 065

REACTIONS (2)
  - Bronchopulmonary aspergillosis [Unknown]
  - Cardiac arrest [Fatal]
